FAERS Safety Report 8187181-1 (Version None)
Quarter: 2012Q1

REPORT INFORMATION
  Report Type: 
  Country: None (occurrence: None)
  Receive Date: 20120306
  Receipt Date: 20120302
  Transmission Date: 20120608
  Serious: No
  Sender: FDA-Public Use
  Company Number: US-BAYER-2012-021559

PATIENT
  Age: 71 Year
  Sex: Male
  Weight: 66 kg

DRUGS (3)
  1. TPN [Concomitant]
     Dosage: 2 DF, PRN, 6 IN TOTAL
     Route: 048
  2. TPN [Concomitant]
  3. ALEVE (CAPLET) [Suspect]

REACTIONS (2)
  - PAIN [None]
  - NO ADVERSE EVENT [None]
